FAERS Safety Report 10709653 (Version 2)
Quarter: 2015Q1

REPORT INFORMATION
  Report Type: Spontaneous
  Country: GB (occurrence: GB)
  Receive Date: 20150114
  Receipt Date: 20150217
  Transmission Date: 20150721
  Serious: Yes (Other)
  Sender: FDA-Public Use
  Company Number: PHFR2014GB004941

PATIENT
  Age: 72 Year
  Sex: Female

DRUGS (1)
  1. CLOZARIL [Suspect]
     Active Substance: CLOZAPINE
     Indication: SCHIZOPHRENIA
     Dosage: UNK
     Route: 048
     Dates: start: 20060104

REACTIONS (7)
  - Dyspnoea [Unknown]
  - Pallor [Unknown]
  - Neutrophil count increased [Not Recovered/Not Resolved]
  - Malaise [Unknown]
  - Chronic obstructive pulmonary disease [Unknown]
  - Haemoglobin decreased [Not Recovered/Not Resolved]
  - White blood cell count increased [Recovered/Resolved]

NARRATIVE: CASE EVENT DATE: 20140709
